FAERS Safety Report 4417909-5 (Version None)
Quarter: 2004Q2

REPORT INFORMATION
  Report Type: 
  Country: None (occurrence: None)
  Receive Date: 20040618
  Receipt Date: 20030819
  Transmission Date: 20050107
  Serious: Yes (Other)
  Sender: FDA-Public Use
  Company Number: 1-9824638

PATIENT
  Sex: Female

DRUGS (1)
  1. LIDEX CREAM .05% [Suspect]
     Dosage: UNSPECIFIED CUTANEOUS APPLICATION

REACTIONS (1)
  - UNEVALUABLE EVENT [None]
